FAERS Safety Report 8227727-8 (Version None)
Quarter: 2012Q1

REPORT INFORMATION
  Report Type: 
  Country: None (occurrence: None)
  Receive Date: 20120322
  Receipt Date: 20120320
  Transmission Date: 20120608
  Serious: Yes (Hospitalization)
  Sender: FDA-Public Use
  Company Number: BE-PFIZER INC-2012044838

PATIENT
  Age: 33 Year
  Sex: Female
  Weight: 51.7 kg

DRUGS (7)
  1. MEDROL [Concomitant]
     Dosage: 32 MG, 1X/DAY
     Dates: start: 20120224
  2. ZOLPIDEM TARTRATE [Concomitant]
     Indication: SLEEP DISORDER
     Dosage: 10 MG, AS NEEDED
     Route: 048
  3. SULFAMETHOXAZOLE AND TRIMETHOPRIM DOUBLE STRENGTH [Concomitant]
     Indication: INFECTION PROPHYLAXIS
     Dosage: UNK
     Dates: start: 20110726
  4. CRIZOTINIB [Suspect]
     Indication: ANAPLASTIC LARGE CELL LYMPHOMA T- AND NULL-CELL TYPES
     Dosage: 250 MG, 2X/DAY
     Route: 048
     Dates: start: 20110616, end: 20120217
  5. LORAZEPAM [Concomitant]
     Indication: SLEEP DISORDER
     Dosage: 2 MG, AS NEEDED
     Route: 048
  6. MEDROL [Concomitant]
     Indication: GRAFT VERSUS HOST DISEASE
     Dosage: 64 MG, 1X/DAY
     Route: 048
     Dates: start: 20120216
  7. PANTOPRAZOLE [Concomitant]
     Indication: GASTRIC ULCER
     Dosage: 40 MG, 2X/DAY
     Route: 048
     Dates: start: 20110614

REACTIONS (3)
  - HEPATOTOXICITY [None]
  - VISION BLURRED [None]
  - GAIT DISTURBANCE [None]
